FAERS Safety Report 8143361-2 (Version None)
Quarter: 2012Q1

REPORT INFORMATION
  Report Type: 
  Country: None (occurrence: None)
  Receive Date: 20120217
  Receipt Date: 20120206
  Transmission Date: 20120608
  Serious: Yes (Hospitalization, Other)
  Sender: FDA-Public Use
  Company Number: CA-JNJFOC-20120203388

PATIENT
  Sex: Male

DRUGS (1)
  1. REMICADE [Suspect]
     Indication: PRODUCT USED FOR UNKNOWN INDICATION
     Route: 042
     Dates: start: 20060101, end: 20100101

REACTIONS (4)
  - WHITE BLOOD CELL COUNT DECREASED [None]
  - JUVENILE ARTHRITIS [None]
  - RASH [None]
  - PAIN [None]
